FAERS Safety Report 9414158 (Version 1)
Quarter: 2013Q3

REPORT INFORMATION
  Report Type: Spontaneous
  Country: US (occurrence: US)
  Receive Date: 20130723
  Receipt Date: 20130723
  Transmission Date: 20140515
  Serious: Yes (Hospitalization, Congenital Anomaly, Other)
  Sender: FDA-Public Use
  Company Number: US-ELI_LILLY_AND_COMPANY-US201307003964

PATIENT
  Sex: 0

DRUGS (8)
  1. CYMBALTA [Suspect]
     Dosage: 60 MG, UNK
     Route: 064
     Dates: start: 20041213
  2. CYMBALTA [Suspect]
     Dosage: 60 MG, UNK
     Route: 064
     Dates: start: 20041213
  3. TRAMADOL [Concomitant]
     Dosage: UNK
     Route: 064
     Dates: start: 20050407
  4. TRAMADOL [Concomitant]
     Dosage: UNK
     Route: 064
     Dates: start: 20050407
  5. HYDROCODONE W/APAP [Concomitant]
     Route: 064
  6. HYDROCODONE W/APAP [Concomitant]
     Route: 064
  7. ACETAMINOPHEN W/CODEINE [Concomitant]
     Dosage: UNK
     Dates: start: 20050318
  8. ACETAMINOPHEN W/CODEINE [Concomitant]
     Dosage: UNK
     Dates: start: 20050318

REACTIONS (10)
  - Cardiac septal defect [Unknown]
  - Pneumonia [Unknown]
  - Anaemia [Unknown]
  - Bronchiolitis [Unknown]
  - Upper respiratory tract infection [Unknown]
  - Urine output decreased [Unknown]
  - Infantile spitting up [Unknown]
  - Candida infection [Unknown]
  - Foetal exposure during pregnancy [Unknown]
  - Vomiting [Unknown]
